FAERS Safety Report 8464029-9 (Version None)
Quarter: 2012Q2

REPORT INFORMATION
  Report Type: 
  Country: None (occurrence: None)
  Receive Date: 20120625
  Receipt Date: 20120612
  Transmission Date: 20120825
  Serious: Yes (Death, Hospitalization, Other)
  Sender: FDA-Public Use
  Company Number: AU-BRISTOL-MYERS SQUIBB COMPANY-15966518

PATIENT
  Age: 61 Year
  Sex: Male
  Weight: 77 kg

DRUGS (1)
  1. IPILIMUMAB [Suspect]
     Indication: MALIGNANT MELANOMA
     Dosage: NO OF DOSES:2
     Route: 042
     Dates: start: 20110706

REACTIONS (3)
  - METASTASES TO CENTRAL NERVOUS SYSTEM [None]
  - RADIATION NECROSIS [None]
  - DEATH [None]
